FAERS Safety Report 5218981-5 (Version None)
Quarter: 2007Q1

REPORT INFORMATION
  Report Type: 
  Country: None (occurrence: None)
  Receive Date: 20070125
  Receipt Date: 20070122
  Transmission Date: 20070707
  Serious: Yes (Death)
  Sender: FDA-Public Use
  Company Number: PHEH2006US13567

PATIENT
  Age: 85 Year
  Sex: Male

DRUGS (1)
  1. CLOZARIL [Suspect]
     Indication: PSYCHOTIC DISORDER
     Dosage: 6.25 MG, QHS
     Route: 048
     Dates: start: 20060929, end: 20061001

REACTIONS (2)
  - DEHYDRATION [None]
  - PNEUMONIA [None]
